FAERS Safety Report 4653099-1 (Version None)
Quarter: 2005Q2

REPORT INFORMATION
  Report Type: 
  Country: None (occurrence: None)
  Receive Date: 20050502
  Receipt Date: 20050420
  Transmission Date: 20051028
  Serious: Yes (Hospitalization)
  Sender: FDA-Public Use
  Company Number: MEDI-0003227

PATIENT
  Age: 59 Year
  Sex: Female

DRUGS (5)
  1. ETHYOL [Suspect]
     Indication: PROPHYLAXIS
     Dosage: 500 MG, ONCE, INTRAVENOUS
     Route: 042
     Dates: start: 20050420, end: 20050420
  2. FLUOROURACIL [Concomitant]
  3. LEUCOVORIN CALCIUM [Concomitant]
  4. OXALIPLATIN (OXALIPATIN) [Concomitant]
  5. AVASTIN [Concomitant]

REACTIONS (2)
  - ASTHENIA [None]
  - TREMOR [None]
